FAERS Safety Report 5964597-2 (Version None)
Quarter: 2008Q4

REPORT INFORMATION
  Report Type: 
  Country: None (occurrence: None)
  Receive Date: 20081122
  Receipt Date: 20081122
  Transmission Date: 20090506
  Serious: No
  Sender: FDA-Public Use
  Company Number: None

PATIENT
  Sex: Male
  Weight: 174.6349 kg

DRUGS (1)
  1. LIPITOR [Suspect]
     Indication: BLOOD CHOLESTEROL
     Dosage: 20MG 1X DAILY
     Dates: start: 20080917, end: 20081104

REACTIONS (4)
  - ARTHRALGIA [None]
  - GOUT [None]
  - TREATMENT FAILURE [None]
  - WALKING AID USER [None]
